FAERS Safety Report 7263614-X (Version None)
Quarter: 2011Q1

REPORT INFORMATION
  Report Type: 
  Country: None (occurrence: None)
  Receive Date: 20110130
  Receipt Date: 20101109
  Transmission Date: 20110831
  Serious: No
  Sender: FDA-Public Use
  Company Number: US-ABBOTT-10P-163-0684105-00

PATIENT
  Sex: Male
  Weight: 70.824 kg

DRUGS (4)
  1. MELOXICAM [Concomitant]
     Indication: ANTIINFLAMMATORY THERAPY
  2. HUMIRA [Suspect]
     Indication: JUVENILE ARTHRITIS
     Dates: start: 20100701
  3. PREDNISONE [Concomitant]
     Indication: PRODUCT USED FOR UNKNOWN INDICATION
     Dates: start: 20101101, end: 20101108
  4. LEUCOVORIN CALCIUM [Concomitant]
     Indication: ANTIINFLAMMATORY THERAPY

REACTIONS (2)
  - ARTHRALGIA [None]
  - JOINT SWELLING [None]
